FAERS Safety Report 9855817 (Version 6)
Quarter: 2015Q4

REPORT INFORMATION
  Report Type: Spontaneous
  Country: CA (occurrence: CA)
  Receive Date: 20140130
  Receipt Date: 20151223
  Transmission Date: 20160305
  Serious: Yes (Other)
  Sender: FDA-Public Use
  Company Number: PHHY2014CA007727

PATIENT
  Age: 35 Year
  Sex: Female
  Weight: 66 kg

DRUGS (1)
  1. OXYTOCIN. [Suspect]
     Active Substance: OXYTOCIN
     Indication: UTERINE CONTRACTIONS DURING PREGNANCY
     Route: 042

REACTIONS (2)
  - Hypoxia [Recovering/Resolving]
  - Ventilation perfusion mismatch [Recovering/Resolving]
